FAERS Safety Report 25613302 (Version 1)
Quarter: 2025Q3

REPORT INFORMATION
  Report Type: Spontaneous
  Country: EU (occurrence: EU)
  Receive Date: 20250728
  Receipt Date: 20250728
  Transmission Date: 20251021
  Serious: Yes (Hospitalization)
  Sender: Norvium Bioscience
  Company Number: EU-Norvium Bioscience LLC-080450

PATIENT
  Age: 78 Year
  Sex: Female

DRUGS (1)
  1. KETOCONAZOLE [Suspect]
     Active Substance: KETOCONAZOLE
     Indication: Product used for unknown indication

REACTIONS (2)
  - Gastrointestinal disorder [Unknown]
  - Dehydration [Unknown]
